FAERS Safety Report 9807043 (Version 1)
Quarter: 2014Q1

REPORT INFORMATION
  Report Type: Report from Study
  Country: US (occurrence: US)
  Receive Date: 20140110
  Receipt Date: 20140110
  Transmission Date: 20141002
  Serious: Yes (Death, Other)
  Sender: FDA-Public Use
  Company Number: US-ROCHE-1330671

PATIENT
  Age: 18 Year
  Sex: Male

DRUGS (7)
  1. MYCOPHENOLATE MOFETIL [Suspect]
     Indication: THALASSAEMIA BETA
     Route: 065
  2. ALEMTUZUMAB [Suspect]
     Indication: THALASSAEMIA BETA
     Dosage: THREE DAILY DOSES OF 10 MG, 20MG, AND 30 MG TO PATIENTS }30 KG AND AT A DOSE OF 0.3MG/KG FOR PATIENT
     Route: 065
  3. FLUDARABINE [Suspect]
     Indication: THALASSAEMIA BETA
     Dosage: 30MG/M2/DOSE FOR A TOTAL OF 150MG/M2 ON DAYS -7 THROUGH -3
     Route: 065
  4. MELPHALAN [Suspect]
     Indication: THALASSAEMIA BETA
     Dosage: 70MG/M2/DOSE FOR A TOTAL DOSE OF 140 MG/M2. ON DAYS -2 AND -1
     Route: 065
  5. CYCLOSPORINE [Suspect]
     Indication: THALASSAEMIA BETA
     Route: 065
  6. ACYCLOVIR [Concomitant]
  7. PENTAMIDINE [Concomitant]

REACTIONS (2)
  - Toxoplasmosis [Fatal]
  - Venoocclusive liver disease [Unknown]
